FAERS Safety Report 9211097 (Version 1)
Quarter: 2013Q2

REPORT INFORMATION
  Report Type: Report from Study
  Country: US (occurrence: US)
  Receive Date: 20130404
  Receipt Date: 20130404
  Transmission Date: 20140414
  Serious: Yes (Hospitalization)
  Sender: FDA-Public Use
  Company Number: US-AMGEN-US285270

PATIENT
  Age: 85 Year
  Sex: Male

DRUGS (20)
  1. DENOSUMAB [Suspect]
     Indication: PROSTATE CANCER
     Dosage: UNK BLINDED, Q4WK
     Route: 058
     Dates: start: 20070608
  2. LOVASTATIN [Concomitant]
     Dosage: 40 MG, QD
     Route: 048
     Dates: start: 1995
  3. ASPIRIN [Concomitant]
     Dosage: 81 MG, QD
     Route: 048
     Dates: start: 1995
  4. CALCIUM [Concomitant]
     Dosage: 500 MG, BID
     Route: 048
     Dates: start: 20070609
  5. ERGOCALCIFEROL [Concomitant]
     Dosage: 200 IU, BID
     Route: 048
     Dates: start: 20070608
  6. PRAMINPEXOLE DIHYDROCHLORIDE [Concomitant]
     Dosage: .125 MG, QD
     Route: 048
     Dates: start: 20070827
  7. FOLIC ACID [Concomitant]
     Dosage: 1 MG, QD
     Route: 048
     Dates: start: 20080220
  8. LEVETIRACETAM [Concomitant]
     Dosage: 500 MG, BID
     Route: 048
     Dates: start: 20080215
  9. ACETAMINOPHEN [Concomitant]
     Dosage: 1000 MG, PRN
     Route: 048
     Dates: start: 20080226
  10. DEXAMETHASONE [Concomitant]
     Dosage: 4 MG, BID
     Route: 048
     Dates: start: 20080318
  11. DOCUSATE SODIUM [Concomitant]
     Dosage: 100 MG, BID
     Route: 048
     Dates: start: 20080327
  12. DEXTROSE AND SODIUM CHLORIDE INJECTION [Concomitant]
     Dosage: 500 ML, Q3WK
     Route: 042
     Dates: start: 20080308
  13. POTASSIUM CHLORIDE [Concomitant]
     Dosage: 10 MEQ, Q3WK
     Route: 042
     Dates: start: 20080318
  14. DEXAMETHASONE [Concomitant]
     Dosage: 20 MG, Q3WK
     Route: 042
     Dates: start: 20080318
  15. PALONOSETRON HYDROCHLORIDE [Concomitant]
     Dosage: .25 MG, Q3WK
     Route: 042
     Dates: start: 20080318
  16. FUROSEMIDE [Concomitant]
     Dosage: 10 MG, Q3WK
     Route: 042
     Dates: start: 20080318
  17. MANNITOL [Concomitant]
     Dosage: 25 G, Q3WK
     Route: 042
     Dates: start: 20080318
  18. CISPLATIN [Concomitant]
     Dosage: 114 MG, Q3WK
     Route: 042
     Dates: start: 20080318
  19. PEMETREXED DISODIUM [Concomitant]
     Dosage: 950 MG, Q3WK
     Route: 042
     Dates: start: 20080318
  20. APREPITANT [Concomitant]
     Dosage: 205 MG, UNK
     Route: 048
     Dates: start: 20080318

REACTIONS (1)
  - Deep vein thrombosis [Unknown]
